FAERS Safety Report 16776318 (Version 1)
Quarter: 2019Q3

REPORT INFORMATION
  Report Type: Spontaneous
  Country: CN (occurrence: CN)
  Receive Date: 20190905
  Receipt Date: 20190905
  Transmission Date: 20191005
  Serious: Yes (Other)
  Sender: FDA-Public Use
  Company Number: CN-BAYER-2019-148629

PATIENT
  Sex: Female

DRUGS (2)
  1. MIRENA [Suspect]
     Active Substance: LEVONORGESTREL
     Indication: ENDOMETRIAL HYPERPLASIA
  2. MIRENA [Suspect]
     Active Substance: LEVONORGESTREL
     Indication: ENDOMETRIAL HYPERPLASIA
     Dosage: 20 MCG/24HR, CONT
     Route: 015
     Dates: start: 2018

REACTIONS (6)
  - Drug ineffective [None]
  - Product use in unapproved indication [None]
  - Off label use of device [None]
  - Neoplasm malignant [None]
  - Genital haemorrhage [None]
  - Oestrogen receptor assay negative [None]

NARRATIVE: CASE EVENT DATE: 2018
